FAERS Safety Report 17721681 (Version 1)
Quarter: 2020Q2

REPORT INFORMATION
  Report Type: Spontaneous
  Country: US (occurrence: US)
  Receive Date: 20200429
  Receipt Date: 20200429
  Transmission Date: 20200714
  Serious: No
  Sender: FDA-Public Use
  Company Number: US-ALLERGAN-1940458US

PATIENT
  Age: 81 Year
  Sex: Male

DRUGS (2)
  1. FML FORTE [Suspect]
     Active Substance: FLUOROMETHOLONE
     Indication: DRY EYE
     Dosage: 2 GTT, BID
     Dates: start: 201910
  2. RESTASIS [Concomitant]
     Active Substance: CYCLOSPORINE
     Indication: DRY EYE
     Dosage: UNK, BID
     Dates: start: 2017

REACTIONS (1)
  - Foreign body sensation in eyes [Recovered/Resolved]
